FAERS Safety Report 7912695-6 (Version None)
Quarter: 2011Q4

REPORT INFORMATION
  Report Type: 
  Country: None (occurrence: None)
  Receive Date: 20111114
  Receipt Date: 20111110
  Transmission Date: 20120403
  Serious: Yes (Other)
  Sender: FDA-Public Use
  Company Number: DE-SANOFI-AVENTIS-2011SA074019

PATIENT
  Age: 69 Year
  Sex: Male

DRUGS (2)
  1. TAMSULOSIN HYDROCHLORIDE [Concomitant]
     Indication: PROSTATIC DISORDER
     Route: 065
  2. MULTAQ [Suspect]
     Route: 048
     Dates: start: 20100101

REACTIONS (1)
  - MACULAR DEGENERATION [None]
